FAERS Safety Report 7008092-0 (Version None)
Quarter: 2010Q3

REPORT INFORMATION
  Report Type: 
  Country: None (occurrence: None)
  Receive Date: 20100920
  Receipt Date: 20100908
  Transmission Date: 20110219
  Serious: Yes (Other)
  Sender: FDA-Public Use
  Company Number: CAP10000365

PATIENT
  Sex: Female

DRUGS (1)
  1. MACROBID [Suspect]

REACTIONS (1)
  - HEPATIC FAILURE [None]
